FAERS Safety Report 17926574 (Version 2)
Quarter: 2020Q2

REPORT INFORMATION
  Report Type: Spontaneous
  Country: ES (occurrence: ES)
  Receive Date: 20200622
  Receipt Date: 20200624
  Transmission Date: 20200714
  Serious: Yes (Hospitalization)
  Sender: FDA-Public Use
  Company Number: ES-GE HEALTHCARE LIFE SCIENCES-2020CSU002620

PATIENT

DRUGS (2)
  1. VISIPAQUE [Suspect]
     Active Substance: IODIXANOL
     Indication: COMPUTERISED TOMOGRAM
     Dosage: UP TO 90 ML (EXACT DOSE UNKNOWN), SINGLE
     Route: 042
     Dates: start: 20200609, end: 20200609
  2. VISIPAQUE [Suspect]
     Active Substance: IODIXANOL
     Indication: ABDOMINAL NEOPLASM

REACTIONS (2)
  - Product administration error [Recovered/Resolved]
  - Intravascular gas [Recovered/Resolved]

NARRATIVE: CASE EVENT DATE: 20200609
